FAERS Safety Report 4636492-2 (Version None)
Quarter: 2005Q2

REPORT INFORMATION
  Report Type: 
  Country: None (occurrence: None)
  Receive Date: 20050414
  Receipt Date: 20050414
  Transmission Date: 20051028
  Serious: Yes (Life-Threatening)
  Sender: FDA-Public Use
  Company Number: None

PATIENT
  Age: 85 Year
  Sex: Male
  Weight: 70 kg

DRUGS (8)
  1. NATRECOR [Suspect]
     Indication: CARDIAC FAILURE CONGESTIVE
     Dosage: 138 MCG     IV BOLUS
     Route: 040
     Dates: start: 20050412, end: 20050412
  2. CIPROFLOXACIN [Concomitant]
  3. CEFOTAXIME [Concomitant]
  4. AMIODARONE HCL [Concomitant]
  5. ZAROXOLYN [Concomitant]
  6. FUROSEMIDE [Concomitant]
  7. HYRALAZINE [Concomitant]
  8. PANTOPRAZOLE SODIUM [Concomitant]

REACTIONS (3)
  - CARDIAC ARREST [None]
  - HYPOTENSION [None]
  - INFUSION SITE REACTION [None]
